FAERS Safety Report 8346807-X (Version None)
Quarter: 2012Q2

REPORT INFORMATION
  Report Type: 
  Country: None (occurrence: None)
  Receive Date: 20120509
  Receipt Date: 20120504
  Transmission Date: 20120825
  Serious: Yes (Hospitalization)
  Sender: FDA-Public Use
  Company Number: SE-SANOFI-AVENTIS-2011SA063595

PATIENT
  Age: 49 Year
  Sex: Female

DRUGS (8)
  1. MULTAQ [Suspect]
     Route: 048
     Dates: start: 20110501, end: 20110923
  2. METOPROLOL TARTRATE [Concomitant]
     Route: 065
  3. LIPITOR [Concomitant]
     Route: 065
  4. CORDARONE [Suspect]
     Indication: ATRIAL FIBRILLATION
     Route: 065
     Dates: start: 20110926, end: 20110926
  5. ASPIRIN [Concomitant]
     Route: 065
  6. RAMIPRIL [Concomitant]
     Route: 065
  7. FUROSEMIDE [Concomitant]
     Route: 065
  8. MULTAQ [Suspect]
     Indication: ATRIAL FIBRILLATION
     Route: 048
     Dates: start: 20110101, end: 20110301

REACTIONS (3)
  - TORSADE DE POINTES [None]
  - CARDIAC ARREST [None]
  - VENTRICULAR FIBRILLATION [None]
